FAERS Safety Report 8483877 (Version 3)
Quarter: 2013Q2

REPORT INFORMATION
  Report Type: Report from Study
  Country: US (occurrence: US)
  Receive Date: 20120330
  Receipt Date: 20130502
  Transmission Date: 20140414
  Serious: Yes (Hospitalization)
  Sender: FDA-Public Use
  Company Number: US-BRISTOL-MYERS SQUIBB COMPANY-16477085

PATIENT
  Age: 16 Year
  Sex: Male

DRUGS (9)
  1. ARIPIPRAZOLE [Suspect]
     Indication: BIPOLAR I DISORDER
     Route: 065
     Dates: start: 20111205
  2. IBUPROFEN [Concomitant]
     Route: 065
  3. TOPAMAX [Concomitant]
     Route: 065
  4. ZOLPIDEM [Concomitant]
     Route: 065
  5. SUCRALFATE [Concomitant]
     Route: 065
  6. BENADRYL [Concomitant]
     Route: 065
  7. GUANFACINE HCL [Concomitant]
     Dates: start: 20110801
  8. ADDERALL [Concomitant]
     Dates: start: 2008
  9. CITALOPRAM [Concomitant]
     Dates: start: 20110801

REACTIONS (1)
  - Bipolar disorder [Unknown]
